FAERS Safety Report 24756235 (Version 1)
Quarter: 2024Q4

REPORT INFORMATION
  Report Type: Spontaneous
  Country: CN (occurrence: CN)
  Receive Date: 20241220
  Receipt Date: 20241220
  Transmission Date: 20250114
  Serious: Yes (Hospitalization, Other)
  Sender: NOVO NORDISK
  Company Number: CN-NOVOPROD-1335669

PATIENT
  Age: 72 Year
  Sex: Male
  Weight: 77.5 kg

DRUGS (1)
  1. INSULIN ASPART [Suspect]
     Active Substance: INSULIN ASPART
     Indication: Type 2 diabetes mellitus
     Dosage: 18-20 UNITS, IN THE MORNING AND EVENING
     Dates: end: 20240803

REACTIONS (2)
  - Cholelithotomy [Recovered/Resolved]
  - Hyperglycaemia [Unknown]
